FAERS Safety Report 17934444 (Version 1)
Quarter: 2020Q2

REPORT INFORMATION
  Report Type: Spontaneous
  Country: US (occurrence: US)
  Receive Date: 20200623
  Receipt Date: 20200623
  Transmission Date: 20200714
  Serious: No
  Sender: FDA-Public Use
  Company Number: None

PATIENT
  Age: 30 Year
  Sex: Female
  Weight: 117 kg

DRUGS (14)
  1. NP THYROID [Suspect]
     Active Substance: LEVOTHYROXINE\LIOTHYRONINE
     Indication: HYPOTHYROIDISM
     Route: 048
     Dates: end: 20200604
  2. MONTELUKAST [Concomitant]
     Active Substance: MONTELUKAST SODIUM
  3. LYRICA [Concomitant]
     Active Substance: PREGABALIN
  4. SUCRALFATE. [Concomitant]
     Active Substance: SUCRALFATE
  5. ONDANSETRON [Concomitant]
     Active Substance: ONDANSETRON
  6. SYNTHROID [Concomitant]
     Active Substance: LEVOTHYROXINE SODIUM
  7. NUVARING [Concomitant]
     Active Substance: ETHINYL ESTRADIOL\ETONOGESTREL
  8. SOMA [Concomitant]
     Active Substance: CARISOPRODOL
  9. PANTOPRAZOLE [Concomitant]
     Active Substance: PANTOPRAZOLE
  10. TOPIRAMATE. [Concomitant]
     Active Substance: TOPIRAMATE
  11. METFORMIN [Concomitant]
     Active Substance: METFORMIN HYDROCHLORIDE
  12. METOPROLOL. [Concomitant]
     Active Substance: METOPROLOL
  13. DULOXETINE. [Concomitant]
     Active Substance: DULOXETINE
  14. CALCITRIOL. [Concomitant]
     Active Substance: CALCITRIOL

REACTIONS (4)
  - Heart rate increased [None]
  - Chest pain [None]
  - Muscular weakness [None]
  - Fatigue [None]
